FAERS Safety Report 4284556-8 (Version None)
Quarter: 2004Q1

REPORT INFORMATION
  Report Type: 
  Country: None (occurrence: None)
  Receive Date: 20040130
  Receipt Date: 20040112
  Transmission Date: 20041129
  Serious: Yes (Hospitalization)
  Sender: FDA-Public Use
  Company Number: DSA_23858_2004

PATIENT
  Age: 40 Year
  Sex: Male

DRUGS (3)
  1. TAVOR [Suspect]
     Dosage: 0.5 MG Q DAY PO
     Route: 048
     Dates: start: 20000414, end: 20000502
  2. ZYPREXA [Suspect]
     Dosage: 10 MG Q DAY PO
     Route: 048
     Dates: start: 20000303, end: 20000502
  3. ZOLOFT [Suspect]
     Dosage: 100 MG Q DAY PO
     Route: 048
     Dates: start: 20000414, end: 20000502

REACTIONS (3)
  - ALANINE AMINOTRANSFERASE INCREASED [None]
  - LEUKOPENIA [None]
  - NEUTROPENIA [None]
